FAERS Safety Report 16483811 (Version 3)
Quarter: 2019Q3

REPORT INFORMATION
  Report Type: Spontaneous
  Country: US (occurrence: US)
  Receive Date: 20190627
  Receipt Date: 20190912
  Transmission Date: 20191004
  Serious: Yes (Hospitalization)
  Sender: FDA-Public Use
  Company Number: US-PFIZER INC-2019274308

PATIENT
  Age: 68 Year
  Sex: Female
  Weight: 85.28 kg

DRUGS (5)
  1. KEYTRUDA [Concomitant]
     Active Substance: PEMBROLIZUMAB
     Indication: NEOPLASM MALIGNANT
     Dosage: UNK
  2. ATORVASTATIN [Concomitant]
     Active Substance: ATORVASTATIN
     Indication: BLOOD CHOLESTEROL ABNORMAL
     Dosage: UNK
  3. INLYTA [Suspect]
     Active Substance: AXITINIB
     Indication: RENAL CANCER
     Dosage: 10 MG, 2X/DAY
     Dates: start: 20190528
  4. INLYTA [Suspect]
     Active Substance: AXITINIB
     Dosage: 3 MG, 2X/DAY [TAKES 3 MG IN THE MORNING AND 3 MG AT NIGHT]
  5. SYNTHROID [Concomitant]
     Active Substance: LEVOTHYROXINE SODIUM
     Dosage: UNK

REACTIONS (12)
  - Hypertension [Unknown]
  - Diarrhoea [Unknown]
  - Decreased appetite [Unknown]
  - Vomiting [Unknown]
  - Weight decreased [Unknown]
  - Abdominal distension [Unknown]
  - Asthenia [Not Recovered/Not Resolved]
  - Gait inability [Unknown]
  - Fatigue [Unknown]
  - Dehydration [Unknown]
  - Dysphonia [Unknown]
  - Taste disorder [Unknown]
